FAERS Safety Report 25504242 (Version 1)
Quarter: 2025Q3

REPORT INFORMATION
  Report Type: Spontaneous
  Country: US (occurrence: US)
  Receive Date: 20250702
  Receipt Date: 20250702
  Transmission Date: 20251021
  Serious: No
  Sender: TRIS PHARMA, INC.
  Company Number: US-TRIS PHARMA, INC.-25US012019

PATIENT

DRUGS (4)
  1. DYANAVEL XR [Suspect]
     Active Substance: AMPHETAMINE
     Indication: Attention deficit hyperactivity disorder
     Dates: end: 20250619
  2. DYANAVEL XR [Suspect]
     Active Substance: AMPHETAMINE
     Dates: start: 20241001
  3. DYANAVEL XR [Suspect]
     Active Substance: AMPHETAMINE
     Dates: start: 20241108
  4. DYANAVEL XR [Suspect]
     Active Substance: AMPHETAMINE
     Dates: start: 20241216

REACTIONS (2)
  - Foot deformity [Unknown]
  - Bruxism [Unknown]
